FAERS Safety Report 16070075 (Version 2)
Quarter: 2019Q1

REPORT INFORMATION
  Report Type: Spontaneous
  Country: US (occurrence: US)
  Receive Date: 20190314
  Receipt Date: 20190322
  Transmission Date: 20190418
  Serious: No
  Sender: FDA-Public Use
  Company Number: US-BIOGEN-2019BI00693010

PATIENT
  Age: 42 Year
  Sex: Female

DRUGS (2)
  1. AVONEX [Suspect]
     Active Substance: INTERFERON BETA-1A
     Indication: MULTIPLE SCLEROSIS
     Route: 050
     Dates: start: 20190121
  2. AVONEX [Suspect]
     Active Substance: INTERFERON BETA-1A
     Route: 030
     Dates: start: 20190121

REACTIONS (10)
  - Anxiety [Not Recovered/Not Resolved]
  - Fatigue [Recovered/Resolved]
  - Fear [Not Recovered/Not Resolved]
  - Anger [Not Recovered/Not Resolved]
  - Acne [Not Recovered/Not Resolved]
  - Apathy [Not Recovered/Not Resolved]
  - Balance disorder [Recovered/Resolved with Sequelae]
  - Mood swings [Not Recovered/Not Resolved]
  - Depressed mood [Not Recovered/Not Resolved]
  - Influenza like illness [Not Recovered/Not Resolved]

NARRATIVE: CASE EVENT DATE: 2019
